FAERS Safety Report 15338218 (Version 1)
Quarter: 2018Q3

REPORT INFORMATION
  Report Type: Spontaneous
  Country: US (occurrence: US)
  Receive Date: 20180827
  Receipt Date: 20180827
  Transmission Date: 20181010
  Serious: Yes (Hospitalization)
  Sender: FDA-Public Use
  Company Number: None

PATIENT
  Age: 72 Year
  Sex: Female

DRUGS (1)
  1. MYCOPHENOLATE 500MG WEST?WARD [Suspect]
     Active Substance: MYCOPHENOLATE MOFETIL
     Indication: MYOSITIS
     Route: 048
     Dates: start: 20180711, end: 20180725

REACTIONS (3)
  - Dizziness [None]
  - Hypertension [None]
  - Loss of consciousness [None]

NARRATIVE: CASE EVENT DATE: 20180725
